FAERS Safety Report 15128274 (Version 1)
Quarter: 2018Q3

REPORT INFORMATION
  Report Type: Spontaneous
  Country: US (occurrence: US)
  Receive Date: 20180711
  Receipt Date: 20180711
  Transmission Date: 20181010
  Serious: No
  Sender: FDA-Public Use
  Company Number: US-GLENMARK PHARMACEUTICALS-2017GMK029766

PATIENT

DRUGS (1)
  1. MUPIROCIN. [Suspect]
     Active Substance: MUPIROCIN
     Indication: NASAL DISORDER
     Dosage: 1 DF, BID
     Route: 045
     Dates: start: 20171109, end: 20171110

REACTIONS (6)
  - Headache [Not Recovered/Not Resolved]
  - Nasal disorder [Not Recovered/Not Resolved]
  - Product use in unapproved indication [Unknown]
  - Incorrect route of drug administration [Unknown]
  - Nasal discomfort [Recovered/Resolved]
  - Condition aggravated [Not Recovered/Not Resolved]

NARRATIVE: CASE EVENT DATE: 20171109
